FAERS Safety Report 9490985 (Version 1)
Quarter: 2013Q3

REPORT INFORMATION
  Report Type: Spontaneous
  Country: US (occurrence: US)
  Receive Date: 20130830
  Receipt Date: 20130830
  Transmission Date: 20140515
  Serious: No
  Sender: FDA-Public Use
  Company Number: US-PFIZER INC-2013249921

PATIENT
  Sex: Female

DRUGS (3)
  1. CHANTIX [Suspect]
     Indication: SMOKING CESSATION THERAPY
     Dosage: UNK
     Dates: start: 2013
  2. LAMICTAL [Interacting]
     Dosage: UNK
  3. PAXIL [Interacting]
     Dosage: UNK

REACTIONS (1)
  - Drug interaction [Unknown]
